FAERS Safety Report 9170669 (Version 3)
Quarter: 2013Q1

REPORT INFORMATION
  Report Type: Spontaneous
  Country: JP (occurrence: None)
  Receive Date: 20130311
  Receipt Date: 20130321
  Transmission Date: 20140127
  Serious: Yes (Life-Threatening)
  Sender: FDA-Public Use
  Company Number: TCI2013A01219

PATIENT
  Age: 65 Year
  Sex: Male

DRUGS (7)
  1. NESINA [Suspect]
     Indication: TYPE 2 DIABETES MELLITUS
     Dosage: (25 MG, 1 IN 1 D)
     Route: 048
     Dates: start: 20120130, end: 20121010
  2. MICAMLO AP [Concomitant]
  3. ARTIST [Concomitant]
  4. BAYASPIRIN [Concomitant]
  5. KINEDAK [Concomitant]
  6. ALLOZYM [Concomitant]
  7. MEVALOTIN [Concomitant]

REACTIONS (3)
  - Acute myocardial infarction [None]
  - Diabetic neuropathy [None]
  - Condition aggravated [None]
